FAERS Safety Report 6940096-6 (Version None)
Quarter: 2010Q3

REPORT INFORMATION
  Report Type: 
  Country: None (occurrence: None)
  Receive Date: 20100825
  Receipt Date: 20100816
  Transmission Date: 20110219
  Serious: Yes (Hospitalization)
  Sender: FDA-Public Use
  Company Number: BR-US-EMD SERONO, INC.-230220J10BRA

PATIENT
  Sex: Female

DRUGS (3)
  1. REBIF [Suspect]
     Indication: RELAPSING-REMITTING MULTIPLE SCLEROSIS
     Route: 058
     Dates: start: 20090107
  2. RIVOTRIL [Concomitant]
  3. INCONTINOL (OXYBUTININ) [Concomitant]

REACTIONS (9)
  - FEELING COLD [None]
  - INCORRECT ROUTE OF DRUG ADMINISTRATION [None]
  - INJECTION SITE ERYTHEMA [None]
  - INJECTION SITE HAEMATOMA [None]
  - MOBILITY DECREASED [None]
  - OOPHORECTOMY [None]
  - SEPSIS [None]
  - TREMOR [None]
  - WEIGHT DECREASED [None]
